FAERS Safety Report 7584658-4 (Version None)
Quarter: 2011Q2

REPORT INFORMATION
  Report Type: 
  Country: None (occurrence: None)
  Receive Date: 20110630
  Receipt Date: 20110615
  Transmission Date: 20111010
  Serious: Yes (Other)
  Sender: FDA-Public Use
  Company Number: FR-ROCHE-783969

PATIENT
  Sex: Male
  Weight: 85 kg

DRUGS (7)
  1. RISPERIDONE [Concomitant]
     Dates: start: 20110421
  2. ZOPICLONE [Concomitant]
     Dates: start: 20110405
  3. CLONAZEPAM [Concomitant]
     Dates: start: 20110405
  4. ACIDE N-ACETYL-ASPARTYL-GLUTAMIQUE [Concomitant]
     Dosage: DOSE: 2PQ X 3 D
     Dates: start: 20110525
  5. DOMPERIDONE [Concomitant]
     Dosage: TDD: 1 CC/D
     Dates: start: 20110615
  6. TOCILIZUMAB [Suspect]
     Indication: ANKYLOSING SPONDYLITIS
     Dosage: INFUSION; LAST DOSE PRIOR TO SAE: 18 MAY 2011.
     Route: 042
     Dates: start: 20110518, end: 20110615
  7. MORPHINE [Concomitant]
     Dates: start: 20090107

REACTIONS (2)
  - NEUROLOGICAL SYMPTOM [None]
  - EYE HAEMORRHAGE [None]
